FAERS Safety Report 4946498-1 (Version None)
Quarter: 2006Q1

REPORT INFORMATION
  Report Type: 
  Country: None (occurrence: None)
  Receive Date: 20060317
  Receipt Date: 20060306
  Transmission Date: 20060701
  Serious: Yes (Hospitalization)
  Sender: FDA-Public Use
  Company Number: NSADSS2001000002

PATIENT
  Sex: Male
  Weight: 70 kg

DRUGS (7)
  1. REMICADE [Suspect]
     Route: 041
     Dates: start: 20000810
  2. REMICADE [Suspect]
     Indication: ANKYLOSING SPONDYLITIS
     Route: 041
     Dates: start: 20000810
  3. ETHAMBUTL [Suspect]
     Indication: DRUG USE FOR UNKNOWN INDICATION
  4. MOXONIDINE [Concomitant]
     Indication: HYPERTENSION
     Route: 048
     Dates: start: 20000706
  5. CANDESARTAN CILEXETIL [Concomitant]
     Indication: HYPERTENSION
     Route: 048
     Dates: start: 20000706
  6. ISOPTIN [Concomitant]
     Indication: HYPERTENSION
     Route: 048
     Dates: start: 20000706
  7. INDOMETHACIN [Concomitant]
     Route: 048

REACTIONS (8)
  - ALLERGIC GRANULOMATOUS ANGIITIS [None]
  - CHILLS [None]
  - DRUG HYPERSENSITIVITY [None]
  - HYPERSENSITIVITY [None]
  - NIGHT SWEATS [None]
  - PYREXIA [None]
  - RASH [None]
  - VIRAL INFECTION [None]
